FAERS Safety Report 18718194 (Version 1)
Quarter: 2021Q1

REPORT INFORMATION
  Report Type: Spontaneous
  Country: IT (occurrence: IT)
  Receive Date: 20210108
  Receipt Date: 20210108
  Transmission Date: 20210419
  Serious: Yes (Hospitalization, Other)
  Sender: FDA-Public Use
  Company Number: IT-SA-2012-05707

PATIENT
  Age: 66 Year
  Sex: Male

DRUGS (1)
  1. IMMUCYST [Suspect]
     Active Substance: BACILLUS CALMETTE-GUERIN SUBSTRAIN CONNAUGHT LIVE ANTIGEN
     Indication: BLADDER CANCER
     Dosage: UNK UNK,6IW
     Route: 043
     Dates: start: 2007, end: 2010

REACTIONS (16)
  - Gastrointestinal inflammation [Recovered/Resolved]
  - Pain [Recovered/Resolved]
  - Hepatomegaly [Recovered/Resolved]
  - Disseminated Bacillus Calmette-Guerin infection [Recovered/Resolved]
  - Fibrosis [Recovered/Resolved]
  - Dyspnoea [Recovered/Resolved]
  - Dysuria [Recovered/Resolved]
  - Pyrexia [Recovered/Resolved]
  - Respiratory alkalosis [Recovered/Resolved]
  - Lung opacity [Not Recovered/Not Resolved]
  - Acute respiratory failure [Recovered/Resolved]
  - Haematuria [Recovered/Resolved]
  - Pneumonia [Recovered/Resolved]
  - Rales [Recovered/Resolved]
  - Bladder cancer recurrent [Recovered/Resolved]
  - Liver disorder [Recovered/Resolved]

NARRATIVE: CASE EVENT DATE: 2010
